FAERS Safety Report 21691213 (Version 1)
Quarter: 2022Q4

REPORT INFORMATION
  Report Type: Other
  Country: AU (occurrence: AU)
  Receive Date: 20221207
  Receipt Date: 20221207
  Transmission Date: 20230113
  Serious: Yes (Other)
  Sender: FDA-Public Use
  Company Number: AU-CELLTRION INC.-2022AU020282

PATIENT

DRUGS (5)
  1. RITUXIMAB [Suspect]
     Active Substance: RITUXIMAB
     Indication: Product used for unknown indication
  2. TAFASITAMAB-CXIX [Suspect]
     Active Substance: TAFASITAMAB-CXIX
     Indication: Product used for unknown indication
  3. LENALIDOMIDE [Suspect]
     Active Substance: LENALIDOMIDE
     Indication: Product used for unknown indication
  4. DEXAMETHASONE [Concomitant]
     Active Substance: DEXAMETHASONE
  5. ACETAMINOPHEN [Concomitant]
     Active Substance: ACETAMINOPHEN

REACTIONS (1)
  - Tumour flare [Unknown]
